FAERS Safety Report 7285316-6 (Version None)
Quarter: 2011Q1

REPORT INFORMATION
  Report Type: 
  Country: None (occurrence: None)
  Receive Date: 20110121
  Receipt Date: 20081110
  Transmission Date: 20110831
  Serious: No
  Sender: FDA-Public Use
  Company Number: 08-227

PATIENT
  Age: 19 Year
  Sex: Male

DRUGS (1)
  1. FAZACLO ODT [Suspect]
     Dosage: 300 MG DAILY PO
     Route: 048
     Dates: start: 20080909, end: 20081020

REACTIONS (2)
  - WEIGHT INCREASED [None]
  - ABDOMINAL DISTENSION [None]
